FAERS Safety Report 21028411 (Version 1)
Quarter: 2022Q2

REPORT INFORMATION
  Report Type: Spontaneous
  Country: IT (occurrence: None)
  Receive Date: 20220630
  Receipt Date: 20220630
  Transmission Date: 20220721
  Serious: Yes (Other)
  Sender: FDA-Public Use
  Company Number: IT-Merck Healthcare KGaA-9331906

PATIENT
  Sex: Female

DRUGS (1)
  1. CLADRIBINE [Suspect]
     Active Substance: CLADRIBINE
     Indication: Product used for unknown indication
     Dosage: YEAR ONE MONTH ONE THERAPY

REACTIONS (3)
  - Dermatitis bullous [Recovering/Resolving]
  - Skin hypertrophy [Recovering/Resolving]
  - Rash erythematous [Recovering/Resolving]
